FAERS Safety Report 8342816-5 (Version None)
Quarter: 2012Q2

REPORT INFORMATION
  Report Type: 
  Country: None (occurrence: None)
  Receive Date: 20120503
  Receipt Date: 20111025
  Transmission Date: 20120825
  Serious: Yes (Hospitalization, Other)
  Sender: FDA-Public Use
  Company Number: GB-024150

PATIENT
  Age: 72 Year
  Sex: Male

DRUGS (1)
  1. (CHLORAMBUCIL) [Suspect]
     Indication: CHRONIC LYMPHOCYTIC LEUKAEMIA
     Dosage: 10 MG/M2 ORAL
     Route: 048
     Dates: start: 20110303

REACTIONS (2)
  - LOWER RESPIRATORY TRACT INFECTION [None]
  - PNEUMONIA [None]
